FAERS Safety Report 5086635-4 (Version None)
Quarter: 2006Q3

REPORT INFORMATION
  Report Type: 
  Country: None (occurrence: None)
  Receive Date: 20060818
  Receipt Date: 20060801
  Transmission Date: 20061208
  Serious: Yes (Hospitalization)
  Sender: FDA-Public Use
  Company Number: 6024125

PATIENT
  Age: 70 Year
  Sex: Male

DRUGS (3)
  1. LODOZ (TABLET) ( HYDROCHLOROTHIAZIDE, BISOPROLO FUMARATE) [Suspect]
     Indication: HYPERTENSION
     Dosage: 5 MG (5 MG, 1 D) ORAL
     Route: 048
     Dates: start: 20051014, end: 20060421
  2. ATORVASTATIN CALCIUM [Concomitant]
  3. KARDEGIC (POWDER FOR ORAL SOLUTION) (ACETYLSALICYLATE LYSINE) [Concomitant]

REACTIONS (2)
  - EOSINOPHILIC PNEUMONIA [None]
  - INTERSTITIAL LUNG DISEASE [None]
